FAERS Safety Report 19225673 (Version 1)
Quarter: 2021Q2

REPORT INFORMATION
  Report Type: Report from Study
  Country: CA (occurrence: CA)
  Receive Date: 20210505
  Receipt Date: 20210505
  Transmission Date: 20210717
  Serious: Yes (Other)
  Sender: FDA-Public Use
  Company Number: CA-JNJFOC-20210461169

PATIENT
  Age: 13 Year
  Sex: Male

DRUGS (2)
  1. REMICADE [Suspect]
     Active Substance: INFLIXIMAB
     Indication: CROHN^S DISEASE
     Route: 042
     Dates: start: 20201125
  2. REMICADE [Suspect]
     Active Substance: INFLIXIMAB
     Dosage: RELOADING 0,1,4 THEN EVERY 4 WEEKS
     Route: 042

REACTIONS (1)
  - Crohn^s disease [Unknown]
